FAERS Safety Report 7408724-9 (Version None)
Quarter: 2011Q2

REPORT INFORMATION
  Report Type: 
  Country: None (occurrence: None)
  Receive Date: 20110412
  Receipt Date: 20110405
  Transmission Date: 20111010
  Serious: Yes (Life-Threatening)
  Sender: FDA-Public Use
  Company Number: US-BRISTOL-MYERS SQUIBB COMPANY-15662505

PATIENT
  Age: 51 Year
  Sex: Male
  Weight: 89 kg

DRUGS (11)
  1. TESSALON [Concomitant]
  2. MINOCYCLINE [Concomitant]
     Route: 048
  3. PACLITAXEL [Suspect]
     Indication: NON-SMALL CELL LUNG CANCER
     Dosage: INTERRUPTED ON 14MAR11
     Route: 042
     Dates: start: 20110314
  4. NEULASTA [Concomitant]
     Route: 058
     Dates: start: 20110316
  5. ALBUTEROL [Concomitant]
  6. OXYCODONE [Concomitant]
  7. ZOFRAN [Concomitant]
     Route: 048
  8. CETUXIMAB [Suspect]
     Indication: NON-SMALL CELL LUNG CANCER
     Dosage: INTERRUPTED ON 28MAR11
     Route: 042
     Dates: start: 20110314
  9. CARBOPLATIN [Suspect]
     Indication: NON-SMALL CELL LUNG CANCER
     Dosage: INTERRUPTED ON 14MAR11
     Route: 042
     Dates: start: 20110314
  10. OXYCONTIN [Concomitant]
     Route: 048
  11. XANAX [Concomitant]
     Route: 048

REACTIONS (2)
  - PNEUMONIA [None]
  - RESPIRATORY DISTRESS [None]
